FAERS Safety Report 11204359 (Version 2)
Quarter: 2019Q3

REPORT INFORMATION
  Report Type: Spontaneous
  Country: US (occurrence: US)
  Receive Date: 20150620
  Receipt Date: 20190806
  Transmission Date: 20191004
  Serious: No
  Sender: FDA-Public Use
  Company Number: US-009507513-1506USA009319

PATIENT
  Sex: Female

DRUGS (2)
  1. DULERA [Suspect]
     Active Substance: FORMOTEROL FUMARATE DIHYDRATE\MOMETASONE FUROATE
     Dosage: UNK
     Route: 055
  2. DULERA [Suspect]
     Active Substance: FORMOTEROL FUMARATE DIHYDRATE\MOMETASONE FUROATE
     Indication: ASTHMA
     Dosage: 100/5MCRG
     Route: 055

REACTIONS (6)
  - Product quality issue [Unknown]
  - Poor quality device used [Unknown]
  - Product dose omission [Unknown]
  - Product quality issue [Unknown]
  - Dyspnoea [Not Recovered/Not Resolved]
  - Dyspnoea [Recovered/Resolved]

NARRATIVE: CASE EVENT DATE: 2019
